FAERS Safety Report 4283661-X (Version None)
Quarter: 2004Q1

REPORT INFORMATION
  Report Type: 
  Country: None (occurrence: None)
  Receive Date: 20040202
  Receipt Date: 20040116
  Transmission Date: 20041129
  Serious: Yes (Hospitalization)
  Sender: FDA-Public Use
  Company Number: JP-ROCHE-356354

PATIENT
  Age: 15 Year
  Sex: Female
  Weight: 30 kg

DRUGS (7)
  1. TAMIFLU [Suspect]
     Dosage: STRENGTH REPORTED AS 3% DS.
     Route: 048
     Dates: start: 20031229, end: 20040102
  2. CALONAL [Concomitant]
     Route: 048
     Dates: start: 20031222, end: 20040102
  3. ASTOMIN [Concomitant]
     Indication: COUGH
     Route: 048
     Dates: start: 20031222, end: 20040102
  4. HOKUNALIN [Concomitant]
     Indication: WHEEZING
     Dosage: FORMULATION REPORTED AS TAPE.
     Route: 048
     Dates: start: 20031222, end: 20040102
  5. DIPYRIDAMOLE [Concomitant]
     Route: 048
     Dates: start: 20031222, end: 20040102
  6. PERIACTIN [Concomitant]
     Route: 048
     Dates: start: 20031222, end: 20040102
  7. ZITHROMAX [Concomitant]
     Route: 048
     Dates: start: 20031226, end: 20031228

REACTIONS (1)
  - ILEUS [None]
